FAERS Safety Report 8914537 (Version 3)
Quarter: 2013Q1

REPORT INFORMATION
  Report Type: Spontaneous
  Country: DE (occurrence: LB)
  Receive Date: 20121116
  Receipt Date: 20130201
  Transmission Date: 20140127
  Serious: Yes (Other)
  Sender: FDA-Public Use
  Company Number: LB-FRI-1000040403

PATIENT
  Sex: Male
  Weight: 59 kg

DRUGS (12)
  1. ROFLUMILAST [Suspect]
     Indication: CHRONIC OBSTRUCTIVE PULMONARY DISEASE
     Route: 048
     Dates: start: 201209, end: 2012
  2. SINEMET [Concomitant]
     Indication: PARKINSON^S DISEASE
     Dosage: 1.5 DF
  3. NOVONORM [Concomitant]
     Indication: DIABETES MELLITUS
     Dosage: 2 MG
  4. CONCOR [Concomitant]
     Indication: HYPERTENSION
     Dosage: 0.5 DF
  5. SPIRIVA [Concomitant]
     Indication: CHRONIC OBSTRUCTIVE PULMONARY DISEASE
  6. SERETIDE [Concomitant]
     Indication: CHRONIC OBSTRUCTIVE PULMONARY DISEASE
  7. ATORLIP [Concomitant]
     Indication: HYPERLIPIDAEMIA
     Dosage: 10 MG
  8. CALCIUM [Concomitant]
  9. ASPIRIN [Concomitant]
     Dosage: 100 MG
  10. NEUROBION [Concomitant]
  11. FOLIC ACID [Concomitant]
  12. EUTHYROX [Concomitant]
     Dosage: 0.1 MG

REACTIONS (1)
  - Hypoglycaemia [Recovered/Resolved]
